FAERS Safety Report 8018064-5 (Version None)
Quarter: 2012Q1

REPORT INFORMATION
  Report Type: 
  Country: None (occurrence: None)
  Receive Date: 20120103
  Receipt Date: 20111223
  Transmission Date: 20120608
  Serious: Yes (Other)
  Sender: FDA-Public Use
  Company Number: CH-BAYER-2011-097813

PATIENT
  Age: 24 Year
  Sex: Female
  Weight: 96 kg

DRUGS (1)
  1. YASMIN [Suspect]
     Indication: PRODUCT USED FOR UNKNOWN INDICATION
     Dosage: UNK
     Route: 048
     Dates: start: 20060904, end: 20110930

REACTIONS (2)
  - DYSPNOEA [None]
  - PULMONARY EMBOLISM [None]
